FAERS Safety Report 14776767 (Version 2)
Quarter: 2018Q2

REPORT INFORMATION
  Report Type: Spontaneous
  Country: JP (occurrence: JP)
  Receive Date: 20180419
  Receipt Date: 20180531
  Transmission Date: 20180711
  Serious: Yes (Other)
  Sender: FDA-Public Use
  Company Number: PHJP2018JP008610

PATIENT
  Age: 58 Year
  Sex: Female

DRUGS (1)
  1. LAMISIL [Suspect]
     Active Substance: TERBINAFINE HYDROCHLORIDE
     Indication: RASH
     Dosage: UNK
     Route: 048

REACTIONS (5)
  - Rash generalised [Unknown]
  - Acute generalised exanthematous pustulosis [Unknown]
  - Pyrexia [Unknown]
  - Erythema [Unknown]
  - Pemphigus [Unknown]
